FAERS Safety Report 21924277 (Version 3)
Quarter: 2023Q1

REPORT INFORMATION
  Report Type: Spontaneous
  Country: US (occurrence: US)
  Receive Date: 20230130
  Receipt Date: 20230325
  Transmission Date: 20230417
  Serious: Yes (Hospitalization, Other)
  Sender: FDA-Public Use
  Company Number: US-MLMSERVICE-20230116-4043646-1

PATIENT
  Age: 87 Year
  Sex: Female

DRUGS (3)
  1. METHYLPREDNISOLONE [Suspect]
     Active Substance: METHYLPREDNISOLONE
     Indication: Endocrine ophthalmopathy
     Dosage: 1 GRAM, ONCE A DAY
     Route: 042
  2. METHYLPREDNISOLONE [Suspect]
     Active Substance: METHYLPREDNISOLONE
     Indication: Optic neuropathy
  3. METHIMAZOLE [Concomitant]
     Active Substance: METHIMAZOLE
     Indication: Hyperthyroidism
     Dosage: 8.5 MILLIGRAM, ONCE A DAY
     Route: 065

REACTIONS (5)
  - Drug ineffective [Unknown]
  - Hypertension [Unknown]
  - Blood glucose increased [Unknown]
  - Hallucination [Unknown]
  - Drug intolerance [Unknown]
